FAERS Safety Report 7805450-9 (Version None)
Quarter: 2011Q4

REPORT INFORMATION
  Report Type: 
  Country: None (occurrence: None)
  Receive Date: 20111010
  Receipt Date: 20110928
  Transmission Date: 20120403
  Serious: Yes (Other)
  Sender: FDA-Public Use
  Company Number: PHEH2011US05419

PATIENT
  Sex: Female

DRUGS (1)
  1. GILENYA [Suspect]
     Indication: MULTIPLE SCLEROSIS
     Dosage: 0.5 MG, DAILY
     Route: 048
     Dates: start: 20110912

REACTIONS (5)
  - VISUAL IMPAIRMENT [None]
  - FALL [None]
  - VISUAL ACUITY REDUCED [None]
  - HEADACHE [None]
  - OPTIC NEURITIS [None]
